FAERS Safety Report 9893991 (Version 2)
Quarter: 2014Q2

REPORT INFORMATION
  Report Type: Spontaneous
  Country: US (occurrence: US)
  Receive Date: 20140213
  Receipt Date: 20140408
  Transmission Date: 20141212
  Serious: No
  Sender: FDA-Public Use
  Company Number: US-PFIZER INC-2014040049

PATIENT
  Age: 55 Year
  Sex: Female

DRUGS (6)
  1. LIPITOR [Suspect]
     Dosage: 20 MG, 1X/DAY (NIGHTLY)
     Route: 048
  2. CALAN [Suspect]
     Dosage: 120 MG, 2X/DAY
     Route: 048
  3. SKELAXIN [Suspect]
     Dosage: 800 MG, 3X/DAY (AS NEEDED)
     Route: 048
  4. ELAVIL [Concomitant]
     Indication: DEPRESSION
     Dosage: 25 MG, 1X/DAY (NIGHTLY)
     Route: 048
  5. ELAVIL [Concomitant]
     Indication: INSOMNIA
  6. NORCO [Concomitant]
     Indication: PAIN
     Dosage: [5 MG HYDROCODONE, 325 MG ACETAMINOPHEN], AS NEEDED
     Route: 048

REACTIONS (3)
  - Depression [Unknown]
  - Insomnia [Unknown]
  - Pain [Unknown]
